FAERS Safety Report 21065861 (Version 3)
Quarter: 2022Q3

REPORT INFORMATION
  Report Type: Spontaneous
  Country: US (occurrence: US)
  Receive Date: 20220711
  Receipt Date: 20220923
  Transmission Date: 20221027
  Serious: Yes (Other)
  Sender: FDA-Public Use
  Company Number: US-PFIZER INC-202200940887

PATIENT
  Age: 71 Year
  Sex: Female
  Weight: 67.59 kg

DRUGS (2)
  1. GABAPENTIN [Suspect]
     Active Substance: GABAPENTIN
     Indication: Pain in extremity
     Dosage: UNK
  2. GABAPENTIN [Suspect]
     Active Substance: GABAPENTIN
     Indication: Nerve block

REACTIONS (7)
  - Pain in extremity [Unknown]
  - Condition aggravated [Unknown]
  - Headache [Unknown]
  - Mutism [Unknown]
  - Feeding disorder [Unknown]
  - Dysphagia [Unknown]
  - Off label use [Unknown]
